FAERS Safety Report 5117100-3 (Version None)
Quarter: 2006Q3

REPORT INFORMATION
  Report Type: 
  Country: None (occurrence: None)
  Receive Date: 20060925
  Receipt Date: 20060913
  Transmission Date: 20061208
  Serious: Yes (Hospitalization)
  Sender: FDA-Public Use
  Company Number: 2006JP002662

PATIENT
  Age: 4 Year
  Sex: Male

DRUGS (9)
  1. PROTOPIC [Suspect]
     Indication: DERMATITIS ATOPIC
     Dosage: 0.03 %, TOPICAL
     Route: 061
     Dates: start: 20060227, end: 20060728
  2. PANDEL       (HYDROCORTISONE BUTYRATE PROPIONATE) [Suspect]
     Dosage: 3 G, TRANSDERMAL
     Route: 062
     Dates: start: 20050314
  3. PETROLATUM (PETROLATUM) [Concomitant]
  4. PROPETO (WHITE SOFT PARAFFIN) [Concomitant]
  5. HIRUDOID (HEPARINOID) [Concomitant]
  6. TOPALGIC (SUPROFEN) [Concomitant]
  7. GENTACIN (GENTAMICIN SULFATE) [Concomitant]
  8. SALDIMEN DRY SYRUP [Concomitant]
  9. NIPOLAZIN (MEQUITAZINE) SYRUP [Concomitant]

REACTIONS (1)
  - KAPOSI'S VARICELLIFORM ERUPTION [None]
